FAERS Safety Report 5832779-6 (Version None)
Quarter: 2008Q3

REPORT INFORMATION
  Report Type: 
  Country: None (occurrence: None)
  Receive Date: 20080804
  Receipt Date: 20080723
  Transmission Date: 20090109
  Serious: Yes (Other)
  Sender: FDA-Public Use
  Company Number: DE-PFIZER INC-2008048266

PATIENT
  Sex: Female

DRUGS (3)
  1. LYRICA [Suspect]
     Indication: ARTHRALGIA
     Route: 048
  2. LYRICA [Suspect]
     Indication: NEURALGIA
  3. DIPYRONE TAB [Concomitant]
     Indication: PAIN

REACTIONS (4)
  - CRYING [None]
  - PAIN [None]
  - SPINAL DISORDER [None]
  - TINNITUS [None]
